FAERS Safety Report 6756448-3 (Version None)
Quarter: 2010Q2

REPORT INFORMATION
  Report Type: 
  Country: None (occurrence: None)
  Receive Date: 20100604
  Receipt Date: 20100526
  Transmission Date: 20101027
  Serious: Yes (Other)
  Sender: FDA-Public Use
  Company Number: A0862590A

PATIENT
  Age: 53 Year
  Sex: Female
  Weight: 50.1 kg

DRUGS (5)
  1. WELLBUTRIN [Suspect]
     Indication: DRUG USE FOR UNKNOWN INDICATION
     Route: 065
  2. CHANTIX [Suspect]
     Dosage: .5MG PER DAY
     Route: 048
     Dates: start: 20070101
  3. TOPAMAX [Concomitant]
     Indication: MIGRAINE
  4. TRAZODONE HCL [Concomitant]
  5. PROPRANOLOL [Concomitant]
     Dosage: 60MG PER DAY
     Route: 065

REACTIONS (4)
  - FEELING ABNORMAL [None]
  - GLAUCOMA [None]
  - HOMICIDAL IDEATION [None]
  - SUICIDAL IDEATION [None]
